FAERS Safety Report 14606972 (Version 1)
Quarter: 2018Q1

REPORT INFORMATION
  Report Type: Spontaneous
  Country: US (occurrence: US)
  Receive Date: 20180306
  Receipt Date: 20180306
  Transmission Date: 20180509
  Serious: Yes (Hospitalization)
  Sender: FDA-Public Use
  Company Number: None

PATIENT
  Age: 23 Year
  Sex: Female
  Weight: 51.1 kg

DRUGS (8)
  1. ESOMEPRAZOLE [Concomitant]
     Active Substance: ESOMEPRAZOLE
  2. HUMULIN R [Suspect]
     Active Substance: INSULIN HUMAN
     Indication: DIABETES MELLITUS
     Dosage: DATES OF USE - CHRONIC?DOSE 1:10 CHO?FREQUENCY - TID AC
     Route: 058
  3. KEPPRA [Concomitant]
     Active Substance: LEVETIRACETAM
  4. PHENERGAN [Concomitant]
     Active Substance: PROMETHAZINE HYDROCHLORIDE
  5. LANTUS [Suspect]
     Active Substance: INSULIN GLARGINE
     Indication: DIABETES MELLITUS
     Dosage: DATES OF USE - CHRONIC?DOSE - HOME DOSE 10UNITS
     Route: 058
  6. ROBAXIN [Concomitant]
     Active Substance: METHOCARBAMOL
  7. REGLAN [Concomitant]
     Active Substance: METOCLOPRAMIDE HYDROCHLORIDE
  8. LOPRESSOR [Concomitant]
     Active Substance: METOPROLOL TARTRATE

REACTIONS (4)
  - Hypothermia [None]
  - Mental status changes [None]
  - Hypoglycaemia [None]
  - Hypophagia [None]

NARRATIVE: CASE EVENT DATE: 20171220
